FAERS Safety Report 8972742 (Version 1)
Quarter: 2012Q4

REPORT INFORMATION
  Report Type: 
  Country: DE (occurrence: DE)
  Receive Date: 20121218
  Receipt Date: 20121218
  Transmission Date: 20130627
  Serious: Yes (Other)
  Sender: FDA-Public Use
  Company Number: DE-MYLANLABS-2012S1025017

PATIENT
  Age: 84 Year
  Sex: Female

DRUGS (2)
  1. HYDROCHLOROTHIAZIDE [Suspect]
     Indication: HYPERTENSION
     Dosage: daily dose: 12.5 Mg millgram(s) every Days
     Route: 048
     Dates: start: 20120509, end: 20120621
  2. METOPROLOL SUCCINATE [Concomitant]
     Indication: PRODUCT USED FOR UNKNOWN INDICATION
     Dosage: daily dose: 47.5 Mg millgram(s) every Days
     Route: 048

REACTIONS (2)
  - Amaurosis fugax [Recovered/Resolved]
  - Cyanopsia [Recovered/Resolved]
